FAERS Safety Report 4341569-5 (Version None)
Quarter: 2004Q2

REPORT INFORMATION
  Report Type: 
  Country: None (occurrence: None)
  Receive Date: 20040415
  Receipt Date: 20040408
  Transmission Date: 20050107
  Serious: Yes (Hospitalization)
  Sender: FDA-Public Use
  Company Number: OMPQ-NO-0403S-0195

PATIENT
  Age: 64 Year
  Sex: Male
  Weight: 70 kg

DRUGS (7)
  1. OMNIPAQUE 70 [Suspect]
     Indication: OESOPHAGEAL CARCINOMA
     Dosage: UNKNOWN, SINGLE DOSE, I.V.
     Route: 042
     Dates: start: 20040218, end: 20040218
  2. CISPLATIN [Concomitant]
  3. FAMOTIDINE [Concomitant]
  4. CEFAZOLIN SODIUM (CEFAMEZIN) [Concomitant]
  5. FLUOROURACIL [Concomitant]
  6. FILGRASTIM (GRAN) [Concomitant]
  7. BETAMIPRON, PANIPENEM (CARBENIN) [Concomitant]

REACTIONS (6)
  - HAEMODIALYSIS [None]
  - MELAENA [None]
  - POST PROCEDURAL COMPLICATION [None]
  - PYREXIA [None]
  - RENAL FAILURE [None]
  - SHOCK HAEMORRHAGIC [None]
